FAERS Safety Report 25174823 (Version 1)
Quarter: 2025Q2

REPORT INFORMATION
  Report Type: Spontaneous
  Country: KR (occurrence: KR)
  Receive Date: 20250408
  Receipt Date: 20250408
  Transmission Date: 20250717
  Serious: Yes (Death)
  Sender: PFIZER
  Company Number: KR-PFIZER INC-PV202500041109

PATIENT
  Age: 24 Year
  Sex: Male

DRUGS (10)
  1. IBRANCE [Suspect]
     Active Substance: PALBOCICLIB
     Indication: Soft tissue sarcoma
     Route: 048
  2. KYTRIL [Concomitant]
     Active Substance: GRANISETRON HYDROCHLORIDE
     Dosage: UNK, 1X/DAY
     Route: 048
  3. MACPERAN [METOCLOPRAMIDE] [Concomitant]
     Dosage: UNK, 3X/DAY
     Route: 048
  4. MACPERAN [METOCLOPRAMIDE] [Concomitant]
     Dosage: 5 MG, 3X/DAY
     Route: 048
  5. FENTANYL [Concomitant]
     Active Substance: FENTANYL
     Dosage: 25MCG/H, 2X/DAY
  6. FENTANYL [Concomitant]
     Active Substance: FENTANYL
  7. FENTANYL [Concomitant]
     Active Substance: FENTANYL
  8. MOVIZOLO [Concomitant]
     Dosage: 1 DF, 1X/DAY
     Route: 048
  9. SCD MAGNESIUM OXIDE [Concomitant]
     Dosage: 2 DF, 3X/DAY
     Route: 048
  10. LYRICA [Concomitant]
     Active Substance: PREGABALIN
     Indication: Pain
     Dosage: 2 DF, 2X/DAY(AS NEEDED)
     Route: 048

REACTIONS (3)
  - Death [Fatal]
  - Off label use [Unknown]
  - Product use issue [Unknown]
